FAERS Safety Report 14593579 (Version 1)
Quarter: 2018Q1

REPORT INFORMATION
  Report Type: Spontaneous
  Country: US (occurrence: US)
  Receive Date: 20180302
  Receipt Date: 20180302
  Transmission Date: 20180509
  Serious: Yes (Death, Hospitalization)
  Sender: FDA-Public Use
  Company Number: US-PFIZER INC-2017524760

PATIENT
  Age: 74 Year
  Sex: Male
  Weight: 95.25 kg

DRUGS (1)
  1. XALKORI [Suspect]
     Active Substance: CRIZOTINIB
     Indication: LUNG NEOPLASM MALIGNANT
     Dosage: 250 MG, DAILY
     Route: 048
     Dates: start: 2017

REACTIONS (4)
  - Hypotension [Unknown]
  - Death [Fatal]
  - Gout [Unknown]
  - Fall [Unknown]

NARRATIVE: CASE EVENT DATE: 20180120
